FAERS Safety Report 8789681 (Version 1)
Quarter: 2012Q4

REPORT INFORMATION
  Report Type: Spontaneous
  Country: US (occurrence: None)
  Receive Date: 20120905
  Receipt Date: 20120905
  Transmission Date: 20130627
  Serious: Yes (Other)
  Sender: FDA-Public Use
  Company Number: AUR-APL-2012-03734

PATIENT
  Sex: Male

DRUGS (2)
  1. VENLAFAXINE [Suspect]
  2. EFFEXOR XR [Suspect]

REACTIONS (2)
  - Aggression [None]
  - Drug effect incomplete [None]
